FAERS Safety Report 5398072-3 (Version None)
Quarter: 2007Q3

REPORT INFORMATION
  Report Type: 
  Country: None (occurrence: None)
  Receive Date: 20070726
  Receipt Date: 20070716
  Transmission Date: 20080115
  Serious: Yes (Life-Threatening, Hospitalization)
  Sender: FDA-Public Use
  Company Number: DE-ELI_LILLY_AND_COMPANY-DE200707001324

PATIENT
  Age: 68 Year
  Sex: Female

DRUGS (4)
  1. CYMBALTA [Suspect]
     Indication: DEPRESSION
     Dosage: 60 MG, DAILY (1/D)
     Route: 048
     Dates: start: 20070605, end: 20070614
  2. LEVOTHYROXINE SODIUM [Concomitant]
     Dates: start: 20070605, end: 20070614
  3. BISOPROLOL FUMARATE [Concomitant]
     Dates: start: 20070605, end: 20070614
  4. RAMIPRIL [Concomitant]
     Dates: start: 20070605, end: 20070614

REACTIONS (2)
  - GOITRE [None]
  - HYPERTENSION [None]
